FAERS Safety Report 5907023-1 (Version None)
Quarter: 2008Q4

REPORT INFORMATION
  Report Type: 
  Country: None (occurrence: None)
  Receive Date: 20081003
  Receipt Date: 20080930
  Transmission Date: 20090506
  Serious: Yes (Death)
  Sender: FDA-Public Use
  Company Number: FR-BRISTOL-MYERS SQUIBB COMPANY-14356299

PATIENT
  Sex: Male

DRUGS (2)
  1. ERBITUX [Suspect]
     Indication: HEAD AND NECK CANCER
     Route: 042
  2. RADIOTHERAPY [Concomitant]
     Indication: HEAD AND NECK CANCER

REACTIONS (1)
  - MYOCARDIAL INFARCTION [None]
